FAERS Safety Report 4448424-0 (Version None)
Quarter: 2004Q3

REPORT INFORMATION
  Report Type: 
  Country: None (occurrence: None)
  Receive Date: 20040914
  Receipt Date: 20040706
  Transmission Date: 20050211
  Serious: Yes (Death)
  Sender: FDA-Public Use
  Company Number: NZ-MERCK-0407NZL00013

PATIENT
  Sex: Female

DRUGS (4)
  1. AMITRIPTYLINE HYDROCHLORIDE [Concomitant]
     Route: 065
  2. ANASTROZOLE [Concomitant]
     Route: 065
  3. OMEPRAZOLE [Concomitant]
     Route: 065
  4. VIOXX [Suspect]
     Route: 048
     Dates: start: 20040101

REACTIONS (5)
  - DEATH [None]
  - DYSPNOEA [None]
  - LOCAL SWELLING [None]
  - MOUTH ULCERATION [None]
  - OEDEMA PERIPHERAL [None]
